FAERS Safety Report 6308207-3 (Version None)
Quarter: 2009Q3

REPORT INFORMATION
  Report Type: 
  Country: None (occurrence: None)
  Receive Date: 20090810
  Receipt Date: 20090721
  Transmission Date: 20100115
  Serious: Yes (Hospitalization)
  Sender: FDA-Public Use
  Company Number: DSA_34067_2009

PATIENT
  Sex: Female
  Weight: 61.2356 kg

DRUGS (1)
  1. CARDIZEM LA [Suspect]
     Indication: HYPERTENSION
     Dosage: (HALF A TABLET)
     Dates: start: 20050101, end: 20050101

REACTIONS (2)
  - GRAND MAL CONVULSION [None]
  - HYPERTENSION [None]
